FAERS Safety Report 6304552-6 (Version None)
Quarter: 2009Q3

REPORT INFORMATION
  Report Type: 
  Country: None (occurrence: None)
  Receive Date: 20090806
  Receipt Date: 20090729
  Transmission Date: 20100115
  Serious: Yes (Hospitalization)
  Sender: FDA-Public Use
  Company Number: TRP_06322_2009

PATIENT
  Sex: Male

DRUGS (3)
  1. INFERGEN [Suspect]
     Indication: HEPATITIS C
     Dosage: 15 UG QD [PLACED ON HOLD 24-JUL-2009]
     Route: 058
     Dates: start: 20090616, end: 20090713
  2. RIBAVIRIN [Suspect]
     Dosage: MG BID ORAL
     Route: 048
     Dates: start: 20090616, end: 20090713
  3. ANXIETY MEDICATION [Concomitant]

REACTIONS (8)
  - ASTHENIA [None]
  - CARDIAC VALVE DISEASE [None]
  - DIALYSIS [None]
  - DIARRHOEA [None]
  - DIZZINESS [None]
  - HYPOTENSION [None]
  - INFLUENZA LIKE ILLNESS [None]
  - RENAL FAILURE [None]
